FAERS Safety Report 8245911-4 (Version None)
Quarter: 2012Q1

REPORT INFORMATION
  Report Type: 
  Country: None (occurrence: None)
  Receive Date: 20120328
  Receipt Date: 20120328
  Transmission Date: 20120608
  Serious: Yes (Hospitalization)
  Sender: FDA-Public Use
  Company Number: None

PATIENT
  Sex: Male
  Weight: 18.6 kg

DRUGS (5)
  1. VINCRISTINE SULFATE [Suspect]
     Dosage: 4 MG
  2. METHOTREXATE [Suspect]
     Dosage: 12 MG
  3. PEG-L-ASPARAGINASE (PEGASPARGASE, ONCOSPAR) [Suspect]
     Dosage: 3325 IU
  4. DEXAMETHASONE TAB [Suspect]
     Dosage: 112 MG
  5. CYTARABINE [Suspect]
     Dosage: 70 MG

REACTIONS (7)
  - RENAL FAILURE ACUTE [None]
  - NEPHROLITHIASIS [None]
  - PAIN [None]
  - DYSURIA [None]
  - HAEMOGLOBIN DECREASED [None]
  - OEDEMA [None]
  - PYELOCALIECTASIS [None]
